FAERS Safety Report 14919252 (Version 1)
Quarter: 2018Q2

REPORT INFORMATION
  Report Type: Spontaneous
  Country: JP (occurrence: JP)
  Receive Date: 20180521
  Receipt Date: 20180521
  Transmission Date: 20180711
  Serious: Yes (Other)
  Sender: FDA-Public Use
  Company Number: JP-PFIZER INC-2018203225

PATIENT
  Age: 40 Year
  Sex: Female

DRUGS (1)
  1. GABAPEN 200MG [Suspect]
     Active Substance: GABAPENTIN
     Dosage: UNK
     Dates: start: 201605, end: 201701

REACTIONS (2)
  - Acute kidney injury [Unknown]
  - Hypercalcaemia [Unknown]
